FAERS Safety Report 6640474-9 (Version None)
Quarter: 2010Q1

REPORT INFORMATION
  Report Type: 
  Country: None (occurrence: None)
  Receive Date: 20100318
  Receipt Date: 20100308
  Transmission Date: 20100710
  Serious: Yes (Other)
  Sender: FDA-Public Use
  Company Number: JP-PFIZER INC-2010023020

PATIENT
  Age: 48 Year
  Sex: Female

DRUGS (1)
  1. NASANYL [Suspect]
     Indication: UTERINE LEIOMYOMA
     Dosage: UNK
     Route: 045
     Dates: start: 20100204

REACTIONS (1)
  - DEAFNESS BILATERAL [None]
